FAERS Safety Report 12381818 (Version 3)
Quarter: 2016Q3

REPORT INFORMATION
  Report Type: Spontaneous
  Country: US (occurrence: US)
  Receive Date: 20160518
  Receipt Date: 20160705
  Transmission Date: 20161109
  Serious: Yes (Hospitalization, Other)
  Sender: FDA-Public Use
  Company Number: US-JNJFOC-20160510368

PATIENT
  Age: 8 Year
  Sex: Male

DRUGS (7)
  1. INFLIXIMAB, RECOMBINANT [Suspect]
     Active Substance: INFLIXIMAB
     Indication: CROHN^S DISEASE
     Route: 042
  2. INFLIXIMAB, RECOMBINANT [Suspect]
     Active Substance: INFLIXIMAB
     Indication: CROHN^S DISEASE
     Route: 042
     Dates: end: 201405
  3. INFLIXIMAB, RECOMBINANT [Suspect]
     Active Substance: INFLIXIMAB
     Indication: CROHN^S DISEASE
     Route: 042
     Dates: start: 201407
  4. INFLIXIMAB, RECOMBINANT [Suspect]
     Active Substance: INFLIXIMAB
     Indication: CROHN^S DISEASE
     Route: 042
     Dates: start: 201406
  5. INFLIXIMAB, RECOMBINANT [Suspect]
     Active Substance: INFLIXIMAB
     Indication: CROHN^S DISEASE
     Dosage: AT 0, 2, AND 6 WEEKS
     Route: 042
     Dates: start: 201308
  6. ADALIMUMAB [Suspect]
     Active Substance: ADALIMUMAB
     Indication: CROHN^S DISEASE
     Route: 065
  7. INFLIXIMAB, RECOMBINANT [Suspect]
     Active Substance: INFLIXIMAB
     Indication: CROHN^S DISEASE
     Route: 042

REACTIONS (19)
  - Leukopenia [Recovering/Resolving]
  - Drug effect incomplete [Unknown]
  - Drug level below therapeutic [Recovering/Resolving]
  - Drug specific antibody present [Recovering/Resolving]
  - Staphylococcal infection [Recovering/Resolving]
  - Pyrexia [Recovering/Resolving]
  - Cellulitis [Recovering/Resolving]
  - Psoriasis [Recovering/Resolving]
  - Product use issue [Unknown]
  - Histiocytosis haematophagic [Recovering/Resolving]
  - Mental status changes [Recovering/Resolving]
  - Hereditary disorder [Recovering/Resolving]
  - Fatigue [Recovering/Resolving]
  - Rash morbilliform [Recovering/Resolving]
  - Chills [Recovering/Resolving]
  - Colitis [Recovering/Resolving]
  - Off label use [Unknown]
  - Hypophagia [Recovering/Resolving]
  - Crohn^s disease [Recovering/Resolving]

NARRATIVE: CASE EVENT DATE: 201404
